FAERS Safety Report 9340576 (Version 1)
Quarter: 2013Q2

REPORT INFORMATION
  Report Type: Spontaneous
  Country: DE (occurrence: DE)
  Receive Date: 20130610
  Receipt Date: 20130610
  Transmission Date: 20140414
  Serious: Yes (Congenital Anomaly)
  Sender: FDA-Public Use
  Company Number: GXKR2013DE002039

PATIENT
  Sex: 0

DRUGS (3)
  1. ENALAPRIL [Suspect]
     Dosage: MATERNAL DOSE: 10 [MG/D ]
     Route: 064
  2. IBUPROFEN [Concomitant]
     Route: 064
  3. FUROSEMIDE [Concomitant]
     Route: 064

REACTIONS (1)
  - Haemangioma [Unknown]
